FAERS Safety Report 17533355 (Version 1)
Quarter: 2020Q1

REPORT INFORMATION
  Report Type: Report from Study
  Country: RO (occurrence: RO)
  Receive Date: 20200312
  Receipt Date: 20200312
  Transmission Date: 20200409
  Serious: Yes (Other)
  Sender: FDA-Public Use
  Company Number: RO-GILEAD-2020-0454252

PATIENT
  Age: 70 Year
  Sex: Female

DRUGS (5)
  1. NITROMINT [Concomitant]
     Active Substance: NITROGLYCERIN
  2. NEBILET [Concomitant]
     Active Substance: NEBIVOLOL
  3. LEDIPASVIR/SOFOSBUVIR [Suspect]
     Active Substance: LEDIPASVIR\SOFOSBUVIR
     Indication: CHRONIC HEPATITIS C
     Dosage: 1 DOSAGE FORM, QD
     Route: 048
     Dates: start: 20190823, end: 20191114
  4. PRESTARIUM [PERINDOPRIL] [Concomitant]
  5. SIOFOR [Concomitant]
     Active Substance: METFORMIN HYDROCHLORIDE

REACTIONS (2)
  - Cervix carcinoma [Not Recovered/Not Resolved]
  - Panic disorder [Not Recovered/Not Resolved]

NARRATIVE: CASE EVENT DATE: 202001
